FAERS Safety Report 20617989 (Version 2)
Quarter: 2022Q2

REPORT INFORMATION
  Report Type: Report from Study
  Country: FR (occurrence: FR)
  Receive Date: 20220321
  Receipt Date: 20220415
  Transmission Date: 20220721
  Serious: Yes (Death, Other)
  Sender: FDA-Public Use
  Company Number: FR-GILEAD-2022-0574418

PATIENT
  Sex: Female
  Weight: 85 kg

DRUGS (2)
  1. SACITUZUMAB GOVITECAN [Suspect]
     Active Substance: SACITUZUMAB GOVITECAN
     Indication: Triple negative breast cancer
     Dosage: 10 MG/KG CYCLE 1 DAY 1 CYCLE 1 DAY 8
     Route: 042
     Dates: start: 202111, end: 202111
  2. SACITUZUMAB GOVITECAN [Suspect]
     Active Substance: SACITUZUMAB GOVITECAN
     Dosage: 10 UNK
     Route: 065
     Dates: end: 20211230

REACTIONS (1)
  - Disease progression [Fatal]
